FAERS Safety Report 13677092 (Version 1)
Quarter: 2017Q2

REPORT INFORMATION
  Report Type: Spontaneous
  Country: US (occurrence: US)
  Receive Date: 20170622
  Receipt Date: 20170622
  Transmission Date: 20170830
  Serious: No
  Sender: FDA-Public Use
  Company Number: US-MYLANLABS-2017M1025287

PATIENT

DRUGS (2)
  1. DOXEPIN HYDROCHLORIDE CAPSULES, USP [Suspect]
     Active Substance: DOXEPIN HYDROCHLORIDE
     Indication: INSOMNIA
  2. DOXEPIN HYDROCHLORIDE CAPSULES, USP [Suspect]
     Active Substance: DOXEPIN HYDROCHLORIDE
     Indication: DEPRESSION
     Dosage: 150 MG, HS
     Route: 048

REACTIONS (4)
  - Anxiety [Not Recovered/Not Resolved]
  - Drug ineffective [Recovered/Resolved]
  - Flushing [Not Recovered/Not Resolved]
  - Nausea [Not Recovered/Not Resolved]

NARRATIVE: CASE EVENT DATE: 20170317
